FAERS Safety Report 17608683 (Version 3)
Quarter: 2020Q4

REPORT INFORMATION
  Report Type: Spontaneous
  Country: US (occurrence: US)
  Receive Date: 20200401
  Receipt Date: 20201013
  Transmission Date: 20210113
  Serious: No
  Sender: FDA-Public Use
  Company Number: US-GLAXOSMITHKLINE-US2020AMR055576

PATIENT
  Sex: Female

DRUGS (3)
  1. ZEJULA [Suspect]
     Active Substance: NIRAPARIB
     Dosage: 200 MG, QD
     Route: 048
     Dates: start: 20200616
  2. ZEJULA [Suspect]
     Active Substance: NIRAPARIB
     Indication: FALLOPIAN TUBE CANCER
     Dosage: 100 MG, QD
     Dates: start: 20200301
  3. ZEJULA [Suspect]
     Active Substance: NIRAPARIB
     Dosage: 200 MG, QD (EVERY NIGHT)

REACTIONS (8)
  - Product monitoring error [Unknown]
  - Insomnia [Unknown]
  - Sciatica [Unknown]
  - Dizziness [Unknown]
  - Vision blurred [Unknown]
  - Hypertension [Unknown]
  - Headache [Unknown]
  - Product dose omission in error [Unknown]
